FAERS Safety Report 4377906-5 (Version None)
Quarter: 2004Q2

REPORT INFORMATION
  Report Type: 
  Country: None (occurrence: None)
  Receive Date: 20040615
  Receipt Date: 20040615
  Transmission Date: 20050107
  Serious: No
  Sender: FDA-Public Use
  Company Number: None

PATIENT
  Sex: Female
  Weight: 88.4514 kg

DRUGS (1)
  1. SECTRAL [Suspect]
     Indication: PALPITATIONS
     Dosage: 200 MG QD ORAL [LIFETIME]
     Route: 048

REACTIONS (4)
  - DRUG INEFFECTIVE [None]
  - PALPITATIONS [None]
  - PHARMACEUTICAL PRODUCT COMPLAINT [None]
  - SEDATION [None]
